FAERS Safety Report 7709521-7 (Version None)
Quarter: 2011Q3

REPORT INFORMATION
  Report Type: 
  Country: None (occurrence: None)
  Receive Date: 20110825
  Receipt Date: 20110823
  Transmission Date: 20111222
  Serious: Yes (Death, Other)
  Sender: FDA-Public Use
  Company Number: CHPA2011US11313

PATIENT
  Sex: Male

DRUGS (2)
  1. MICONAZOLE NITRATE [Suspect]
     Indication: PAIN
  2. MICONAZOLE NITRATE [Suspect]
     Indication: DERMATITIS CONTACT
     Dosage: UNK, UNK
     Route: 061

REACTIONS (5)
  - OFF LABEL USE [None]
  - CARDIAC OPERATION [None]
  - HEPATITIS [None]
  - TRANSFUSION [None]
  - THERAPEUTIC RESPONSE UNEXPECTED [None]
